FAERS Safety Report 16151392 (Version 1)
Quarter: 2019Q2

REPORT INFORMATION
  Report Type: Spontaneous
  Country: SI (occurrence: SI)
  Receive Date: 20190403
  Receipt Date: 20190403
  Transmission Date: 20190711
  Serious: Yes (Hospitalization)
  Sender: FDA-Public Use
  Company Number: PHHY2019SI072801

PATIENT
  Age: 39 Year
  Sex: Male
  Weight: 76 kg

DRUGS (6)
  1. MEDROL [Concomitant]
     Active Substance: METHYLPREDNISOLONE
     Dosage: 16 MG, UNK (STRENGTH: 16 MG)
     Route: 048
     Dates: start: 20181130, end: 20181202
  2. PRIMOTREN [Suspect]
     Active Substance: SULFAMETHOXAZOLE\TRIMETHOPRIM
     Indication: PNEUMOCYSTIS JIROVECII PNEUMONIA
     Dosage: 2 DF, Q8H (80+400MG TABLET, 2 TBL./8H)
     Route: 048
     Dates: start: 20181122, end: 20181127
  3. LANZUL [Concomitant]
     Active Substance: LANSOPRAZOLE
     Indication: GASTRITIS PROPHYLAXIS
     Dosage: 30 MG, QD(IN THE MORNINGS)
     Route: 048
  4. PRIMOTREN [Suspect]
     Active Substance: SULFAMETHOXAZOLE\TRIMETHOPRIM
     Dosage: 4 DF, Q8H (80+400 MG TABLET, 4 TBL./8H)
     Route: 048
     Dates: start: 20181128, end: 20181202
  5. LEKADOL [Concomitant]
     Active Substance: ACETAMINOPHEN
     Indication: BODY TEMPERATURE INCREASED
     Dosage: 500 MG, UNK (IN CASE OF INCREASED BODY TEMPERATURE)
     Route: 048
  6. MEDROL [Concomitant]
     Active Substance: METHYLPREDNISOLONE
     Indication: PRODUCT USED FOR UNKNOWN INDICATION
     Dosage: 32 MG, UNK (STRENGH: 32 MG)
     Route: 048
     Dates: start: 20181123, end: 20181130

REACTIONS (4)
  - Rash generalised [Recovered/Resolved]
  - Type IV hypersensitivity reaction [Recovered/Resolved]
  - Perivascular dermatitis [Recovered/Resolved]
  - Face oedema [Recovered/Resolved]

NARRATIVE: CASE EVENT DATE: 20181202
